FAERS Safety Report 7013594-7 (Version None)
Quarter: 2010Q3

REPORT INFORMATION
  Report Type: 
  Country: None (occurrence: None)
  Receive Date: 20100924
  Receipt Date: 20100915
  Transmission Date: 20110219
  Serious: Yes (Hospitalization)
  Sender: FDA-Public Use
  Company Number: GXKR2010US10380

PATIENT
  Age: 36 Year
  Sex: Male

DRUGS (1)
  1. ESTRADIOL (NGX) [Suspect]
     Dosage: 0.1 MG TWICE WEEKLY

REACTIONS (4)
  - CONVULSION [None]
  - HEADACHE [None]
  - MENINGIOMA [None]
  - TUMOUR EXCISION [None]
